FAERS Safety Report 12625717 (Version 1)
Quarter: 2016Q3

REPORT INFORMATION
  Report Type: Spontaneous
  Country: US (occurrence: None)
  Receive Date: 20160804
  Receipt Date: 20160804
  Transmission Date: 20161109
  Serious: Yes (Hospitalization)
  Sender: FDA-Public Use
  Company Number: None

PATIENT
  Age: 76 Year
  Sex: Female
  Weight: 85.28 kg

DRUGS (1)
  1. FUROSEMIDE, 40MG PAR [Suspect]
     Active Substance: FUROSEMIDE
     Indication: FLUID RETENTION
     Route: 048

REACTIONS (2)
  - Cardiac failure congestive [None]
  - Drug ineffective [None]

NARRATIVE: CASE EVENT DATE: 20160731
